FAERS Safety Report 24693947 (Version 2)
Quarter: 2024Q4

REPORT INFORMATION
  Report Type: Report from Study
  Country: CA (occurrence: CA)
  Receive Date: 20241204
  Receipt Date: 20241229
  Transmission Date: 20250114
  Serious: No
  Sender: ABBVIE
  Company Number: CA-ABBVIE-6029938

PATIENT
  Age: 37 Year
  Sex: Male

DRUGS (2)
  1. RINVOQ [Suspect]
     Active Substance: UPADACITINIB
     Indication: Dermatitis atopic
     Dosage: LAST ADMIN DATE: SEPT 2024, FORM STRENGTH: 15 MILLIGRAM
     Route: 048
     Dates: start: 20240904
  2. RINVOQ [Suspect]
     Active Substance: UPADACITINIB
     Indication: Dermatitis atopic
     Route: 048
     Dates: start: 20241003

REACTIONS (1)
  - Therapeutic product effect decreased [Unknown]

NARRATIVE: CASE EVENT DATE: 20240101
